FAERS Safety Report 17206451 (Version 1)
Quarter: 2020Q1

REPORT INFORMATION
  Report Type: Spontaneous
  Country: US (occurrence: US)
  Receive Date: 20191226
  Receipt Date: 20191226
  Transmission Date: 20200409
  Serious: Yes (Disabling, Other)
  Sender: FDA-Public Use
  Company Number: None

PATIENT
  Age: 63 Year
  Sex: Female
  Weight: 94.5 kg

DRUGS (1)
  1. EMGALITY [Suspect]
     Active Substance: GALCANEZUMAB-GNLM
     Indication: MIGRAINE

REACTIONS (5)
  - Pain [None]
  - Renal pain [None]
  - Bladder pain [None]
  - Anxiety [None]
  - Back pain [None]

NARRATIVE: CASE EVENT DATE: 20190920
